FAERS Safety Report 6088385-4 (Version None)
Quarter: 2009Q1

REPORT INFORMATION
  Report Type: 
  Country: None (occurrence: None)
  Receive Date: 20090224
  Receipt Date: 20090124
  Transmission Date: 20090719
  Serious: No
  Sender: FDA-Public Use
  Company Number: US-BAYER-200911909NA

PATIENT
  Age: 53 Year
  Sex: Female
  Weight: 75 kg

DRUGS (13)
  1. ANGELIQ [Suspect]
     Indication: HORMONE REPLACEMENT THERAPY
     Route: 048
     Dates: start: 20090124
  2. PRILOSEC [Concomitant]
     Indication: ABDOMINAL DISCOMFORT
     Route: 048
  3. ZYRTEC [Concomitant]
     Route: 048
  4. BENADRYL [Concomitant]
     Indication: MULTIPLE ALLERGIES
     Route: 048
  5. OXYCOTOIN [Concomitant]
     Route: 048
  6. PERCOCET [Concomitant]
     Indication: PAIN
     Route: 048
  7. VITAMIN D3 [Concomitant]
  8. VITAMIN B-12 [Concomitant]
     Route: 048
  9. ESTER C [Concomitant]
     Route: 048
  10. CALCIUM [Concomitant]
     Route: 048
  11. MAGNESIUM SULFATE [Concomitant]
     Route: 048
  12. LACTOBACILLUS SPOROGANES [Concomitant]
     Route: 048
  13. IMITREX [Concomitant]
     Indication: MIGRAINE

REACTIONS (1)
  - HEADACHE [None]
